FAERS Safety Report 10756239 (Version 2)
Quarter: 2015Q2

REPORT INFORMATION
  Report Type: Report from Study
  Country: US (occurrence: US)
  Receive Date: 20150202
  Receipt Date: 20150506
  Transmission Date: 20150821
  Serious: Yes (Other)
  Sender: FDA-Public Use
  Company Number: US-SA-2015SA010799

PATIENT
  Age: 46 Year
  Sex: Female

DRUGS (2)
  1. AUBAGIO [Suspect]
     Active Substance: TERIFLUNOMIDE
     Indication: MULTIPLE SCLEROSIS
     Route: 048
     Dates: start: 20141210
  2. AUBAGIO [Suspect]
     Active Substance: TERIFLUNOMIDE
     Indication: MULTIPLE SCLEROSIS
     Route: 048
     Dates: start: 20141206

REACTIONS (8)
  - Bladder pain [Recovered/Resolved]
  - Urinary retention [Recovered/Resolved]
  - Urinary tract infection [Recovered/Resolved]
  - Bladder disorder [Recovered/Resolved]
  - Bladder irritation [Recovered/Resolved]
  - Bacterial infection [Recovered/Resolved]
  - Pruritus [Recovered/Resolved]
  - Alopecia [Not Recovered/Not Resolved]

NARRATIVE: CASE EVENT DATE: 201501
